FAERS Safety Report 12398470 (Version 2)
Quarter: 2016Q3

REPORT INFORMATION
  Report Type: Spontaneous
  Country: US (occurrence: US)
  Receive Date: 20160524
  Receipt Date: 20160823
  Transmission Date: 20161109
  Serious: Yes (Death, Other)
  Sender: FDA-Public Use
  Company Number: US-MDT-ADR-2016-00519

PATIENT
  Age: 48 Year
  Sex: Male

DRUGS (5)
  1. DILAUDID [Suspect]
     Active Substance: HYDROMORPHONE HYDROCHLORIDE
     Dosage: 0.6511 MG/DAY
     Route: 037
  2. BUPIVACAINE. [Suspect]
     Active Substance: BUPIVACAINE
     Dosage: 9.766 MG/DAY
     Route: 037
  3. OXYCODONE EXTENDED RELEASE [Suspect]
     Active Substance: OXYCODONE
     Route: 048
  4. NORTRIPTYLINE [Suspect]
     Active Substance: NORTRIPTYLINE
     Route: 048
  5. BACLOFEN. [Suspect]
     Active Substance: BACLOFEN
     Dosage: 130.22 MCG/DAY
     Route: 037

REACTIONS (5)
  - Confusional state [Fatal]
  - Asthenia [Fatal]
  - Metastatic renal cell carcinoma [Fatal]
  - Urinary incontinence [Fatal]
  - Sedation [Fatal]
